FAERS Safety Report 9102963 (Version 1)
Quarter: 2013Q1

REPORT INFORMATION
  Report Type: Spontaneous
  Country: ZA (occurrence: ZA)
  Receive Date: 20130218
  Receipt Date: 20130218
  Transmission Date: 20140127
  Serious: Yes (Other)
  Sender: FDA-Public Use
  Company Number: ZA-GE HEALTHCARE MEDICAL DIAGNOSTICS-OSCN-NO-1302S-0013

PATIENT
  Age: 47 Year
  Sex: Male

DRUGS (2)
  1. OMNISCAN [Suspect]
     Indication: PRODUCT USED FOR UNKNOWN INDICATION
     Route: 042
     Dates: start: 20130211, end: 20130211
  2. OMNISCAN [Suspect]
     Indication: DIAGNOSTIC PROCEDURE

REACTIONS (4)
  - Thirst [Recovered/Resolved]
  - Urticaria [Recovered/Resolved]
  - Feeling hot [Recovered/Resolved]
  - Blood pressure abnormal [Recovered/Resolved]
